FAERS Safety Report 6383199-X (Version None)
Quarter: 2009Q3

REPORT INFORMATION
  Report Type: 
  Country: None (occurrence: None)
  Receive Date: 20090929
  Receipt Date: 20090915
  Transmission Date: 20100115
  Serious: Yes (Hospitalization)
  Sender: FDA-Public Use
  Company Number: 2009PL000275

PATIENT
  Age: 88 Year
  Sex: Male

DRUGS (11)
  1. IMURAN [Suspect]
     Indication: PEMPHIGOID
     Dosage: 100 MG;QD;
  2. PREDNISONE [Concomitant]
  3. BACTRIM [Concomitant]
  4. NAMENDA [Concomitant]
  5. COREG [Concomitant]
  6. ASPIRIN [Concomitant]
  7. TRENTAL [Concomitant]
  8. OMEPRAZOLE [Concomitant]
  9. DUCUSATE [Concomitant]
  10. CYMBALTA [Concomitant]
  11. IRON [Concomitant]

REACTIONS (9)
  - ANAEMIA MACROCYTIC [None]
  - BLOOD BICARBONATE DECREASED [None]
  - DRUG INTERACTION [None]
  - GOUT [None]
  - LEUKOPENIA [None]
  - LYMPHOCYTE PERCENTAGE DECREASED [None]
  - NEUTROPHIL PERCENTAGE DECREASED [None]
  - PLATELET COUNT DECREASED [None]
  - VOMITING [None]
